FAERS Safety Report 24438171 (Version 1)
Quarter: 2024Q4

REPORT INFORMATION
  Report Type: Report from Study
  Country: CA (occurrence: CA)
  Receive Date: 20241015
  Receipt Date: 20241015
  Transmission Date: 20250115
  Serious: Yes (Other)
  Sender: LUNDBECK
  Company Number: CA-LUNDBECK-DKLU4004525

PATIENT

DRUGS (4)
  1. VYEPTI [Suspect]
     Active Substance: EPTINEZUMAB-JJMR
     Indication: Migraine
     Dosage: 100 MILLIGRAM
     Route: 041
     Dates: start: 20240607, end: 20241007
  2. CANDESARTAN [Concomitant]
     Active Substance: CANDESARTAN
     Indication: Product used for unknown indication
     Dosage: 4 MILLIGRAM
  3. TOPIRAMATE [Concomitant]
     Active Substance: TOPIRAMATE
     Indication: Product used for unknown indication
     Dosage: 100 MILLIGRAM
     Dates: start: 20130508
  4. AVENTYL [Concomitant]
     Active Substance: NORTRIPTYLINE HYDROCHLORIDE
     Indication: Product used for unknown indication
     Dosage: 35 MILLIGRAM
     Dates: start: 20230501

REACTIONS (3)
  - Renal failure [Not Recovered/Not Resolved]
  - Drug ineffective [Unknown]
  - Pruritus [Unknown]
